FAERS Safety Report 10072147 (Version 1)
Quarter: 2014Q2

REPORT INFORMATION
  Report Type: Spontaneous
  Country: US (occurrence: None)
  Receive Date: 20140410
  Receipt Date: 20140410
  Transmission Date: 20141212
  Serious: Yes (Life-Threatening, Hospitalization)
  Sender: FDA-Public Use
  Company Number: None

PATIENT
  Age: 61 Year
  Sex: Female
  Weight: 74.84 kg

DRUGS (3)
  1. VENLAFAXINE [Suspect]
     Indication: MOVEMENT DISORDER
     Route: 048
     Dates: start: 20140326, end: 20140329
  2. VENLAFAXINE [Suspect]
     Indication: MIGRAINE WITH AURA
     Route: 048
     Dates: start: 20140326, end: 20140329
  3. VENLAFAXINE [Suspect]
     Indication: DEPRESSION
     Route: 048
     Dates: start: 20140326, end: 20140329

REACTIONS (10)
  - Stomatitis [None]
  - Lip swelling [None]
  - Swollen tongue [None]
  - Dysphagia [None]
  - Urticaria [None]
  - Hypersensitivity [None]
  - Product quality issue [None]
  - Product substitution issue [None]
  - Product formulation issue [None]
  - Reaction to drug excipients [None]
